FAERS Safety Report 8136902-2 (Version None)
Quarter: 2012Q1

REPORT INFORMATION
  Report Type: 
  Country: None (occurrence: None)
  Receive Date: 20120214
  Receipt Date: 20120208
  Transmission Date: 20120608
  Serious: Yes (Death)
  Sender: FDA-Public Use
  Company Number: US-CELGENEUS-163-21880-12021049

PATIENT
  Sex: Female

DRUGS (15)
  1. ZOMETA [Concomitant]
     Dosage: 40 MG/ 5 ML
  2. ALBUTEROL AER [Concomitant]
  3. CENTRUM CHW [Concomitant]
  4. CLONIDINE [Concomitant]
  5. DEXAMETHASONE [Concomitant]
  6. LISINOPRIL [Concomitant]
  7. ACETAMINOPHEN [Concomitant]
  8. AMLODIPINE [Concomitant]
  9. CALCIUM + D [Concomitant]
  10. REVLIMID [Suspect]
     Indication: MULTIPLE MYELOMA
     Dosage: 10 MILLIGRAM
     Route: 048
     Dates: start: 20120119
  11. PEPCID [Concomitant]
  12. LEVOTHYROXINE SODIUM [Concomitant]
  13. PROMETHAZINE [Concomitant]
  14. FLAXSEED OIL [Concomitant]
  15. ICAPS [Concomitant]

REACTIONS (1)
  - DEATH [None]
